FAERS Safety Report 9518640 (Version 1)
Quarter: 2013Q3

REPORT INFORMATION
  Report Type: Spontaneous
  Country: US (occurrence: None)
  Receive Date: 20130910
  Receipt Date: 20130910
  Transmission Date: 20140515
  Serious: No
  Sender: FDA-Public Use
  Company Number: ALK-2013-001942

PATIENT
  Age: 46 Year
  Sex: Male
  Weight: 90.7 kg

DRUGS (1)
  1. VIVITROL (VIVITROL_NDA) INJECTION, 380MG [Suspect]
     Indication: ALCOHOLISM
     Route: 030
     Dates: start: 20130729, end: 20130729

REACTIONS (9)
  - Injection site reaction [None]
  - Injection site infection [None]
  - Arthropod bite [None]
  - Injection site irritation [None]
  - Injection site mass [None]
  - Injection site erythema [None]
  - Injection site warmth [None]
  - Injection site inflammation [None]
  - Injection site pain [None]
